FAERS Safety Report 8862683 (Version 1)
Quarter: 2012Q4

REPORT INFORMATION
  Report Type: 
  Country: US (occurrence: US)
  Receive Date: 20121026
  Receipt Date: 20121026
  Transmission Date: 20130627
  Serious: No
  Sender: FDA-Public Use
  Company Number: US-PFIZER INC-2012265888

PATIENT
  Age: 41 Year
  Sex: Male
  Weight: 104 kg

DRUGS (1)
  1. ADVIL [Suspect]
     Indication: HEADACHE
     Dosage: 200 mg, UNK
     Route: 048
     Dates: start: 20121022, end: 20121023

REACTIONS (2)
  - Overdose [Unknown]
  - Drug ineffective [Unknown]
